FAERS Safety Report 18285190 (Version 1)
Quarter: 2020Q3

REPORT INFORMATION
  Report Type: Spontaneous
  Country: CR (occurrence: CR)
  Receive Date: 20200918
  Receipt Date: 20200918
  Transmission Date: 20201103
  Serious: Yes (Hospitalization, Other)
  Sender: FDA-Public Use
  Company Number: CR-BRISTOL-MYERS SQUIBB COMPANY-BMS-2020-075029

PATIENT
  Age: 93 Year
  Sex: Female
  Weight: 54 kg

DRUGS (2)
  1. ELIQUIS [Suspect]
     Active Substance: APIXABAN
     Indication: CEREBROVASCULAR ACCIDENT PROPHYLAXIS
     Dosage: 2.5 MILLIGRAM, BID
     Route: 065
  2. AMIODARONE [Concomitant]
     Active Substance: AMIODARONE
     Indication: PRODUCT USED FOR UNKNOWN INDICATION
     Dosage: UNK
     Route: 065

REACTIONS (5)
  - Fall [Unknown]
  - Gait disturbance [Unknown]
  - Balance disorder [Unknown]
  - Joint injury [Unknown]
  - Epidural haemorrhage [Recovered/Resolved]
